FAERS Safety Report 7974795-4 (Version None)
Quarter: 2011Q4

REPORT INFORMATION
  Report Type: 
  Country: None (occurrence: None)
  Receive Date: 20111213
  Receipt Date: 20111207
  Transmission Date: 20120403
  Serious: Yes (Hospitalization, Other)
  Sender: FDA-Public Use
  Company Number: FR-ROCHE-1013666

PATIENT
  Sex: Male
  Weight: 82.5 kg

DRUGS (13)
  1. MIRCERA [Suspect]
     Indication: NEPHROGENIC ANAEMIA
     Dosage: LAST DOSE PRIOR TO SAE 09 NOV 2011
     Route: 058
     Dates: start: 20090724
  2. CLONAZEPAM [Concomitant]
     Dosage: TDD: 10 DROPS
     Dates: start: 20041117
  3. OMEPRAZOLE [Concomitant]
     Dates: start: 20101108
  4. ENOXAPARIN [Concomitant]
     Dates: start: 20040607
  5. ZOPICLONE [Concomitant]
     Dates: start: 20020226
  6. CALCIUM CARBONATE [Concomitant]
     Dates: start: 20040815
  7. OXYCODONE HCL [Concomitant]
     Dates: start: 20110615
  8. AMIODARONE HCL [Concomitant]
     Dates: start: 20110219
  9. NICORANDIL [Concomitant]
     Dates: start: 20040515
  10. POLYSTYRENE SULPHATE (UNK INGREDIENTS) [Concomitant]
     Dosage: 1/2CM
     Dates: start: 20050215
  11. CAPSAICIN [Concomitant]
     Dates: start: 20101229
  12. ALFACALCIDOL [Concomitant]
     Dates: start: 20040515
  13. MORPHINE SULFATE [Concomitant]
     Dates: start: 20091104

REACTIONS (2)
  - CHEST PAIN [None]
  - MYELOFIBROSIS [None]
